FAERS Safety Report 23263457 (Version 1)
Quarter: 2023Q4

REPORT INFORMATION
  Report Type: Spontaneous
  Country: US (occurrence: None)
  Receive Date: 20231204
  Receipt Date: 20231204
  Transmission Date: 20240110
  Serious: Yes (Hospitalization, Disabling)
  Sender: FDA-Public Use
  Company Number: None

PATIENT
  Age: 65 Year
  Sex: Female

DRUGS (9)
  1. PROLIA [Suspect]
     Active Substance: DENOSUMAB
     Indication: Osteoporosis
     Dates: start: 20120301, end: 20120901
  2. HYDROCODONE [Concomitant]
     Active Substance: HYDROCODONE
  3. VICODIN [Concomitant]
     Active Substance: ACETAMINOPHEN\HYDROCODONE BITARTRATE
  4. calcuim [Concomitant]
  5. VITAMIN D3 [Concomitant]
     Active Substance: CHOLECALCIFEROL
  6. k2-MK7 [Concomitant]
  7. ZINC [Concomitant]
     Active Substance: PYRITHIONE ZINC\ZINC\ZINC CHLORIDE
  8. MINERALS [Concomitant]
     Active Substance: MINERALS
  9. COLLAGEN [Concomitant]
     Active Substance: COLLAGEN

REACTIONS (6)
  - Spinal fracture [None]
  - Fractured sacrum [None]
  - Body height decreased [None]
  - Multiple fractures [None]
  - Adverse drug reaction [None]
  - Product use complaint [None]

NARRATIVE: CASE EVENT DATE: 20120301
